FAERS Safety Report 8048263-8 (Version None)
Quarter: 2012Q1

REPORT INFORMATION
  Report Type: 
  Country: None (occurrence: None)
  Receive Date: 20120117
  Receipt Date: 20120103
  Transmission Date: 20120608
  Serious: No
  Sender: FDA-Public Use
  Company Number: US-ROXANE LABORATORIES, INC.-2011-RO-01647RO

PATIENT
  Sex: Female

DRUGS (2)
  1. MORPHINE [Suspect]
     Indication: ARTHRITIS
  2. IBUPROFEN (ADVIL) [Suspect]
     Indication: ARTHRITIS

REACTIONS (2)
  - ARTHRALGIA [None]
  - ARTHRITIS [None]
